FAERS Safety Report 10583171 (Version 1)
Quarter: 2014Q4

REPORT INFORMATION
  Report Type: Report from Study
  Country: US (occurrence: US)
  Receive Date: 20141114
  Receipt Date: 20141114
  Transmission Date: 20150529
  Serious: Yes (Hospitalization)
  Sender: FDA-Public Use
  Company Number: US-BIOGENIDEC-2014BI115657

PATIENT
  Age: 63 Year
  Sex: Female

DRUGS (1)
  1. TECFIDERA [Suspect]
     Active Substance: DIMETHYL FUMARATE
     Indication: MULTIPLE SCLEROSIS

REACTIONS (4)
  - Alopecia [Not Recovered/Not Resolved]
  - Urinary tract infection [Recovered/Resolved]
  - Infection [Unknown]
  - Medical device implantation [Recovered/Resolved]

NARRATIVE: CASE EVENT DATE: 201410
